FAERS Safety Report 7128141-9 (Version None)
Quarter: 2010Q4

REPORT INFORMATION
  Report Type: 
  Country: None (occurrence: None)
  Receive Date: 20101130
  Receipt Date: 20101118
  Transmission Date: 20110411
  Serious: Yes (Other)
  Sender: FDA-Public Use
  Company Number: JP-JNJFOC-20101107780

PATIENT
  Age: 43 Year
  Sex: Female

DRUGS (6)
  1. DUROTEP MT [Suspect]
     Indication: CYSTITIS INTERSTITIAL
     Route: 062
  2. DUROTEP MT [Suspect]
     Route: 062
  3. DUROTEP MT [Suspect]
     Route: 062
  4. FENTANYL CITRATE [Suspect]
     Indication: CYSTITIS INTERSTITIAL
     Route: 008
  5. ROPIVACAINE HYDROCHLORIDE [Suspect]
     Indication: CYSTITIS INTERSTITIAL
     Route: 008
  6. MORPHINE HYDROCHLORIDE [Concomitant]
     Indication: CYSTITIS INTERSTITIAL
     Route: 048

REACTIONS (4)
  - ASTHMA [None]
  - CONSTIPATION [None]
  - INADEQUATE ANALGESIA [None]
  - INCORRECT ROUTE OF DRUG ADMINISTRATION [None]
